FAERS Safety Report 9282085 (Version 1)
Quarter: 2013Q2

REPORT INFORMATION
  Report Type: Spontaneous
  Country: US (occurrence: None)
  Receive Date: 20130508
  Receipt Date: 20130508
  Transmission Date: 20140414
  Serious: Yes (Other)
  Sender: FDA-Public Use
  Company Number: None

PATIENT
  Age: 27 Year
  Sex: Female
  Weight: 77.57 kg

DRUGS (1)
  1. LUPRON [Suspect]
     Indication: ENDOMETRIOSIS
     Route: 030
     Dates: start: 20130328, end: 20130426

REACTIONS (7)
  - Pelvic pain [None]
  - Hot flush [None]
  - Mood swings [None]
  - Suicidal ideation [None]
  - Anger [None]
  - Acne [None]
  - Homicidal ideation [None]
